FAERS Safety Report 7401197-1 (Version None)
Quarter: 2011Q2

REPORT INFORMATION
  Report Type: 
  Country: None (occurrence: None)
  Receive Date: 20110407
  Receipt Date: 20110328
  Transmission Date: 20111010
  Serious: Yes (Disabling, Other)
  Sender: FDA-Public Use
  Company Number: PHFR2011GB01848

PATIENT
  Sex: Male

DRUGS (13)
  1. ASPIRIN [Concomitant]
  2. GLEEVEC [Suspect]
     Dosage: 800 MG, UNK
     Route: 048
     Dates: start: 20090401, end: 20100801
  3. INSULATARD [Concomitant]
  4. SIMVASTATIN [Concomitant]
  5. LANSOPRAZOLE [Concomitant]
  6. GLEEVEC [Suspect]
     Indication: GASTROINTESTINAL STROMAL TUMOUR
     Dosage: 400 MG, UNK
     Route: 048
     Dates: start: 20010101, end: 20030101
  7. BISOPROLOL [Concomitant]
  8. DILTIAZEM HCL [Concomitant]
  9. GLEEVEC [Suspect]
     Dosage: 400 MG, UNK
     Route: 048
     Dates: start: 20050101, end: 20090101
  10. RAMIPRIL [Concomitant]
  11. SPIRONOLACTONE [Concomitant]
  12. QUININE SULFATE [Concomitant]
  13. SUNITINIB MALATE [Concomitant]
     Dosage: 37.5 MG, UNK
     Route: 048
     Dates: start: 20100801

REACTIONS (7)
  - ATRIAL FIBRILLATION [None]
  - FATIGUE [None]
  - GASTROINTESTINAL STROMAL TUMOUR [None]
  - NEOPLASM MALIGNANT [None]
  - VIRAL CARDIOMYOPATHY [None]
  - METASTASES TO PERITONEUM [None]
  - METASTASES TO LIVER [None]
